FAERS Safety Report 22155889 (Version 2)
Quarter: 2023Q2

REPORT INFORMATION
  Report Type: Other
  Country: SE (occurrence: None)
  Receive Date: 20230330
  Receipt Date: 20230607
  Transmission Date: 20230722
  Serious: No
  Sender: FDA-Public Use
  Company Number: SE-ROCHE-3312156

PATIENT
  Sex: Female

DRUGS (3)
  1. GLOFITAMAB [Suspect]
     Active Substance: GLOFITAMAB
     Indication: Lymphoma transformation
     Route: 042
     Dates: start: 20230329
  2. OBINUTUZUMAB [Suspect]
     Active Substance: OBINUTUZUMAB
     Indication: Diffuse large B-cell lymphoma
     Route: 042
     Dates: start: 20150420, end: 20150810
  3. OBINUTUZUMAB [Suspect]
     Active Substance: OBINUTUZUMAB
     Route: 065
     Dates: end: 20160418

REACTIONS (5)
  - Pneumonitis [Unknown]
  - Intentional product use issue [Unknown]
  - Off label use [Unknown]
  - Ill-defined disorder [Unknown]
  - Drug ineffective [Unknown]
